FAERS Safety Report 10159882 (Version 1)
Quarter: 2014Q2

REPORT INFORMATION
  Report Type: Spontaneous
  Country: US (occurrence: US)
  Receive Date: 20140508
  Receipt Date: 20140508
  Transmission Date: 20141212
  Serious: No
  Sender: FDA-Public Use
  Company Number: US-GLAXOSMITHKLINE-A1039049A

PATIENT
  Sex: Female
  Weight: 63.6 kg

DRUGS (8)
  1. TYKERB [Suspect]
     Indication: PRODUCT USED FOR UNKNOWN INDICATION
     Dosage: 750MG PER DAY
     Route: 048
     Dates: start: 2012, end: 2013
  2. EFFEXOR [Concomitant]
  3. REGLAN [Concomitant]
  4. PROZAC [Concomitant]
  5. VITAMIN D [Concomitant]
  6. FISH OIL [Concomitant]
  7. CALCIUM [Concomitant]
  8. MULTIVITAMIN [Concomitant]

REACTIONS (2)
  - Fatigue [Unknown]
  - Anaemia [Unknown]
